FAERS Safety Report 7690479-4 (Version None)
Quarter: 2011Q3

REPORT INFORMATION
  Report Type: 
  Country: None (occurrence: None)
  Receive Date: 20110818
  Receipt Date: 20110811
  Transmission Date: 20111222
  Serious: Yes (Hospitalization)
  Sender: FDA-Public Use
  Company Number: DK-PFIZER INC-2011185351

PATIENT
  Age: 77 Year
  Sex: Female
  Weight: 79 kg

DRUGS (3)
  1. SUNITINIB MALATE [Suspect]
     Indication: METASTATIC RENAL CELL CARCINOMA
     Dosage: 50 MG, UNK
     Dates: start: 20070427
  2. SUNITINIB MALATE [Suspect]
     Dosage: 25 MG, UNK
  3. SUNITINIB MALATE [Suspect]
     Dosage: UNK
     Dates: end: 20091020

REACTIONS (2)
  - FATIGUE [None]
  - CHOLECYSTITIS INFECTIVE [None]
